FAERS Safety Report 16254988 (Version 4)
Quarter: 2019Q2

REPORT INFORMATION
  Report Type: Spontaneous
  Country: JP (occurrence: JP)
  Receive Date: 20190430
  Receipt Date: 20190607
  Transmission Date: 20190711
  Serious: Yes (Hospitalization, Other)
  Sender: FDA-Public Use
  Company Number: PHJP2019JP004841

PATIENT
  Sex: Female

DRUGS (1)
  1. NEORAL [Suspect]
     Active Substance: CYCLOSPORINE
     Indication: NEPHROTIC SYNDROME
     Dosage: 25 MG, UNK
     Route: 048
     Dates: start: 20181025, end: 20181112

REACTIONS (5)
  - Altered state of consciousness [Recovered/Resolved]
  - Visual impairment [Recovered/Resolved]
  - Blepharospasm [Recovered/Resolved]
  - Toxic encephalopathy [Recovered/Resolved]
  - Epilepsy [Recovered/Resolved]

NARRATIVE: CASE EVENT DATE: 20181112
